FAERS Safety Report 23230598 (Version 1)
Quarter: 2023Q4

REPORT INFORMATION
  Report Type: Spontaneous
  Country: US (occurrence: US)
  Receive Date: 20231127
  Receipt Date: 20231127
  Transmission Date: 20240110
  Serious: No
  Sender: FDA-Public Use
  Company Number: US-FreseniusKabi-FK202318387

PATIENT

DRUGS (1)
  1. DIPRIVAN [Suspect]
     Active Substance: ISOPROPYL ALCOHOL\PROPOFOL
     Indication: Sedative therapy
     Dosage: APPROXIMATELY SIX MONTHS AGO

REACTIONS (1)
  - Therapeutic product effect decreased [Unknown]
